FAERS Safety Report 9524901 (Version 3)
Quarter: 2016Q2

REPORT INFORMATION
  Report Type: Spontaneous
  Country: JP (occurrence: JP)
  Receive Date: 20130916
  Receipt Date: 20160603
  Transmission Date: 20160815
  Serious: Yes (Other)
  Sender: FDA-Public Use
  Company Number: JP-ASTELLAS-2013JP009414

PATIENT
  Age: 22 Year
  Sex: Female
  Weight: 39 kg

DRUGS (16)
  1. METHYLPREDNISOLONE                 /00049602/ [Suspect]
     Active Substance: METHYLPREDNISOLONE
     Route: 041
     Dates: start: 201211, end: 201212
  2. PROGRAF [Suspect]
     Active Substance: TACROLIMUS\TACROLIMUS ANHYDROUS
     Indication: SYSTEMIC LUPUS ERYTHEMATOSUS
     Route: 048
     Dates: start: 201210, end: 201211
  3. PREDONINE [Suspect]
     Active Substance: PREDNISOLONE\PREDNISOLONE ACETATE\PREDNISOLONE SODIUM SUCCINATE
     Route: 048
  4. PREDONINE [Suspect]
     Active Substance: PREDNISOLONE\PREDNISOLONE ACETATE\PREDNISOLONE SODIUM SUCCINATE
     Route: 048
     Dates: start: 201301
  5. METHYLPREDNISOLONE                 /00049602/ [Suspect]
     Active Substance: METHYLPREDNISOLONE
     Indication: SYSTEMIC LUPUS ERYTHEMATOSUS
     Route: 041
     Dates: start: 201210, end: 2012
  6. PREDONINE [Suspect]
     Active Substance: PREDNISOLONE\PREDNISOLONE ACETATE\PREDNISOLONE SODIUM SUCCINATE
     Route: 048
     Dates: start: 2012, end: 201209
  7. CICLOSPORIN [Suspect]
     Active Substance: CYCLOSPORINE
     Indication: SYSTEMIC LUPUS ERYTHEMATOSUS
     Dosage: UNK UNK, UNKNOWN FREQ.
     Route: 048
     Dates: start: 201211
  8. CICLOSPORIN [Suspect]
     Active Substance: CYCLOSPORINE
     Route: 048
     Dates: start: 201212
  9. PREDONINE [Suspect]
     Active Substance: PREDNISOLONE\PREDNISOLONE ACETATE\PREDNISOLONE SODIUM SUCCINATE
     Route: 048
  10. PREDONINE [Suspect]
     Active Substance: PREDNISOLONE\PREDNISOLONE ACETATE\PREDNISOLONE SODIUM SUCCINATE
     Route: 048
     Dates: start: 201210, end: 201210
  11. PREDONINE [Suspect]
     Active Substance: PREDNISOLONE\PREDNISOLONE ACETATE\PREDNISOLONE SODIUM SUCCINATE
     Route: 048
     Dates: start: 201210, end: 201211
  12. PREDONINE [Suspect]
     Active Substance: PREDNISOLONE\PREDNISOLONE ACETATE\PREDNISOLONE SODIUM SUCCINATE
     Route: 048
     Dates: start: 201211, end: 201301
  13. PREDONINE [Suspect]
     Active Substance: PREDNISOLONE\PREDNISOLONE ACETATE\PREDNISOLONE SODIUM SUCCINATE
     Route: 048
     Dates: start: 201209, end: 201210
  14. METHYLPREDNISOLONE                 /00049602/ [Suspect]
     Active Substance: METHYLPREDNISOLONE
     Route: 065
     Dates: start: 201301, end: 201301
  15. GAMMA-GLOBULIN [Concomitant]
     Active Substance: IMMUNE GLOBULIN NOS
     Indication: IMMUNOGLOBULIN THERAPY
     Route: 041
     Dates: start: 201212, end: 201212
  16. PREDONINE [Suspect]
     Active Substance: PREDNISOLONE\PREDNISOLONE ACETATE\PREDNISOLONE SODIUM SUCCINATE
     Indication: SYSTEMIC LUPUS ERYTHEMATOSUS
     Dosage: UNK UNK, UNKNOWN FREQ.
     Route: 048

REACTIONS (4)
  - Thrombocytopenia [Recovered/Resolved]
  - Off label use [Unknown]
  - Viral haemorrhagic cystitis [Recovered/Resolved]
  - Histiocytosis haematophagic [Recovered/Resolved]

NARRATIVE: CASE EVENT DATE: 201210
